FAERS Safety Report 5372211-2 (Version None)
Quarter: 2007Q2

REPORT INFORMATION
  Report Type: 
  Country: None (occurrence: None)
  Receive Date: 20070627
  Receipt Date: 20070626
  Transmission Date: 20071010
  Serious: Yes (Other)
  Sender: FDA-Public Use
  Company Number: B0476681A

PATIENT
  Age: 47 Year
  Sex: Male

DRUGS (6)
  1. PAXIL [Suspect]
     Indication: DEPRESSION
     Dosage: 10MG THREE TIMES PER DAY
     Route: 048
     Dates: start: 20050301
  2. LORCAM [Concomitant]
     Route: 048
     Dates: start: 20070501, end: 20070621
  3. CYANOCOBALAMIN [Concomitant]
     Route: 048
     Dates: start: 20070501
  4. SILECE [Concomitant]
     Route: 065
     Dates: start: 20050301
  5. CYTOTEC [Concomitant]
     Route: 048
     Dates: start: 20070501
  6. NEUROTROPIN [Concomitant]
     Route: 065
     Dates: start: 20070501

REACTIONS (1)
  - HAEMORRHAGE SUBCUTANEOUS [None]
